FAERS Safety Report 14309940 (Version 1)
Quarter: 2017Q4

REPORT INFORMATION
  Report Type: Report from Study
  Country: BR (occurrence: BR)
  Receive Date: 20171220
  Receipt Date: 20171220
  Transmission Date: 20180321
  Serious: Yes (Other)
  Sender: FDA-Public Use
  Company Number: BR-NOVOPROD-576942

PATIENT
  Age: 58 Year
  Sex: Female
  Weight: 77 kg

DRUGS (1)
  1. VICTOZA [Suspect]
     Active Substance: LIRAGLUTIDE
     Indication: DIABETES MELLITUS
     Dosage: 0.60 MG
     Route: 065

REACTIONS (1)
  - Hypoglycaemia [Recovered/Resolved]
